FAERS Safety Report 8214589-8 (Version None)
Quarter: 2012Q1

REPORT INFORMATION
  Report Type: 
  Country: None (occurrence: None)
  Receive Date: 20120313
  Receipt Date: 20120226
  Transmission Date: 20120608
  Serious: Yes (Other)
  Sender: FDA-Public Use
  Company Number: CIO12002029

PATIENT
  Age: 77 Year
  Sex: Female

DRUGS (1)
  1. CREST PRO-HEALTH SENSITIVE + ENAMEL SHEILD TOOTHPASTE, STANNOUS FLUORI [Suspect]
     Dosage: 1 APPLIC, ABOUT THREE TIMES, INTRAORAL
     Route: 048
     Dates: start: 20120129, end: 20120130

REACTIONS (8)
  - COUGH [None]
  - DYSPHONIA [None]
  - DYSPHAGIA [None]
  - THROAT IRRITATION [None]
  - OROPHARYNGEAL PAIN [None]
  - HYPERSENSITIVITY [None]
  - PHARYNGEAL OEDEMA [None]
  - ORAL DISCOMFORT [None]
